FAERS Safety Report 17899262 (Version 1)
Quarter: 2020Q2

REPORT INFORMATION
  Report Type: Spontaneous
  Country: US (occurrence: US)
  Receive Date: 20200613
  Receipt Date: 20200613
  Transmission Date: 20200714
  Serious: Yes (Hospitalization)
  Sender: FDA-Public Use
  Company Number: None

PATIENT
  Age: 79 Year
  Sex: Male
  Weight: 76.4 kg

DRUGS (1)
  1. GEMCITABINE HYDROCHLORIDE. [Suspect]
     Active Substance: GEMCITABINE HYDROCHLORIDE
     Dates: end: 20200602

REACTIONS (7)
  - Fatigue [None]
  - Cardiomegaly [None]
  - Cardiac failure congestive [None]
  - Asthenia [None]
  - Hypotension [None]
  - Haemoglobin decreased [None]
  - Vasodilatation [None]

NARRATIVE: CASE EVENT DATE: 20200604
